FAERS Safety Report 7676005 (Version 5)
Quarter: 2013Q3

REPORT INFORMATION
  Report Type: Spontaneous
  Country: GB (occurrence: GB)
  Receive Date: 20101119
  Receipt Date: 20130930
  Transmission Date: 20140515
  Serious: Yes (Other)
  Sender: FDA-Public Use
  Company Number: GB-JNJFOC-20101104173

PATIENT
  Age: 23 Year
  Sex: Female
  Weight: 80.3 kg

DRUGS (6)
  1. STELARA [Suspect]
     Indication: PSORIASIS
     Route: 058
     Dates: start: 20100909
  2. STELARA [Suspect]
     Indication: PSORIASIS
     Route: 058
     Dates: start: 20101230
  3. STELARA [Suspect]
     Indication: PSORIASIS
     Route: 058
     Dates: start: 20101007
  4. ERYTHROMYCIN [Suspect]
     Indication: PRODUCT USED FOR UNKNOWN INDICATION
     Route: 065
  5. YASMIN [Concomitant]
     Indication: CONTRACEPTION
     Route: 048
     Dates: start: 20101120
  6. XENICAL [Concomitant]
     Indication: OVERWEIGHT

REACTIONS (1)
  - Alanine aminotransferase increased [Recovering/Resolving]
